FAERS Safety Report 6235210-4 (Version None)
Quarter: 2009Q2

REPORT INFORMATION
  Report Type: 
  Country: None (occurrence: None)
  Receive Date: 20090615
  Receipt Date: 20090603
  Transmission Date: 20091009
  Serious: Yes (Hospitalization)
  Sender: FDA-Public Use
  Company Number: 230207J08CAN

PATIENT
  Sex: Female

DRUGS (10)
  1. REBIF [Suspect]
     Indication: RELAPSING-REMITTING MULTIPLE SCLEROSIS
     Dosage: 44 MCG, 3 IN 1 WEEKS,
     Dates: start: 20050930, end: 20090101
  2. REBIF [Suspect]
     Indication: RELAPSING-REMITTING MULTIPLE SCLEROSIS
     Dosage: 44 MCG, 3 IN 1 WEEKS,
     Dates: start: 20090101
  3. TOLTERODINE TARTRATE [Concomitant]
  4. ERGOCALCIFEROL [Concomitant]
  5. MULTI-VITAMIN [Concomitant]
  6. RALOXIFENE HYDROCHLORIDE [Concomitant]
  7. RISEDRONATE SODIUM [Concomitant]
  8. COATED ASPIRIN (ACETYLSALICYLIC ACID) [Concomitant]
  9. NOVO-METOPROL (METOPROLOL TARTRATE) [Concomitant]
  10. IRON SUPPLEMENT (IRON) [Concomitant]

REACTIONS (3)
  - CARDIAC SEPTAL DEFECT [None]
  - INJECTION SITE ERYTHEMA [None]
  - PALPITATIONS [None]
